FAERS Safety Report 18906056 (Version 10)
Quarter: 2025Q1

REPORT INFORMATION
  Report Type: Report from Study
  Country: US (occurrence: US)
  Receive Date: 20210217
  Receipt Date: 20250115
  Transmission Date: 20250409
  Serious: Yes (Other)
  Sender: TAKEDA
  Company Number: US-TAKEDA-2021TUS009142

PATIENT
  Age: 76 Year
  Sex: Male

DRUGS (6)
  1. IXAZOMIB [Suspect]
     Active Substance: IXAZOMIB
     Indication: Plasma cell myeloma
  2. IXAZOMIB [Suspect]
     Active Substance: IXAZOMIB
  3. IXAZOMIB [Suspect]
     Active Substance: IXAZOMIB
     Dosage: 4 MILLIGRAM, QD
     Dates: start: 20171210
  4. IXAZOMIB [Suspect]
     Active Substance: IXAZOMIB
  5. IXAZOMIB [Suspect]
     Active Substance: IXAZOMIB
  6. IXAZOMIB [Suspect]
     Active Substance: IXAZOMIB

REACTIONS (11)
  - Rectal haemorrhage [Unknown]
  - Malaise [Unknown]
  - Anaemia [Unknown]
  - Contusion [Unknown]
  - Asthenia [Unknown]
  - Blister [Unknown]
  - Rash pruritic [Unknown]
  - Rash [Unknown]
  - Product dose omission issue [Unknown]
  - Peripheral swelling [Not Recovered/Not Resolved]
  - Oedema peripheral [Not Recovered/Not Resolved]

NARRATIVE: CASE EVENT DATE: 20210208
